FAERS Safety Report 8536019-9 (Version None)
Quarter: 2012Q3

REPORT INFORMATION
  Report Type: 
  Country: None (occurrence: None)
  Receive Date: 20120725
  Receipt Date: 20120716
  Transmission Date: 20120928
  Serious: Yes (Hospitalization)
  Sender: FDA-Public Use
  Company Number: CN-NOVOPROD-356140

PATIENT
  Age: 79 Year
  Sex: Male

DRUGS (3)
  1. NOVOMIX 30 [Suspect]
     Dosage: 36 U, QD
     Route: 065
  2. METFORMIN HYDROCHLORIDE [Concomitant]
     Indication: TYPE 2 DIABETES MELLITUS
     Dosage: 250MG, TID
     Route: 048
  3. NOVOMIX 30 [Suspect]
     Indication: TYPE 2 DIABETES MELLITUS
     Dosage: 26 U, QD
     Route: 065

REACTIONS (4)
  - DIABETES MELLITUS INADEQUATE CONTROL [None]
  - PYREXIA [None]
  - ELECTROLYTE IMBALANCE [None]
  - URINARY TRACT INFECTION [None]
